FAERS Safety Report 7499922-7 (Version None)
Quarter: 2011Q2

REPORT INFORMATION
  Report Type: 
  Country: None (occurrence: None)
  Receive Date: 20110524
  Receipt Date: 20110512
  Transmission Date: 20111010
  Serious: Yes (Hospitalization)
  Sender: FDA-Public Use
  Company Number: FI-ASTRAZENECA-2011SE26486

PATIENT
  Age: 6551 Day
  Sex: Male

DRUGS (8)
  1. ZYPREXA [Suspect]
     Indication: PSYCHOTIC DISORDER
     Route: 048
     Dates: start: 20110305, end: 20110305
  2. ARIPIPRAZOLE [Suspect]
  3. MOVIPREP [Concomitant]
     Indication: CONSTIPATION
     Dosage: 1 DOSE ONCE PER DAY WHEN NEEDED
     Route: 048
     Dates: start: 20110225
  4. QUETIAPINE [Suspect]
     Dates: start: 20110121, end: 20110221
  5. SULPIRIDE [Suspect]
  6. HALOPERIDOL [Suspect]
  7. SEROQUEL XR [Suspect]
     Indication: PSYCHOTIC DISORDER
     Route: 048
     Dates: start: 20110121, end: 20110222
  8. SEROQUEL XR [Suspect]
     Indication: SCHIZOPHRENIA
     Route: 048
     Dates: start: 20110121, end: 20110222

REACTIONS (1)
  - GRANULOCYTOPENIA [None]
